FAERS Safety Report 4789648-2 (Version None)
Quarter: 2005Q4

REPORT INFORMATION
  Report Type: 
  Country: None (occurrence: None)
  Receive Date: 20051004
  Receipt Date: 20050923
  Transmission Date: 20060501
  Serious: Yes (Hospitalization, Other)
  Sender: FDA-Public Use
  Company Number: 2005133779

PATIENT
  Age: 57 Year
  Sex: Female
  Weight: 55.7924 kg

DRUGS (6)
  1. ZOLOFT [Suspect]
     Indication: ANXIETY
     Dosage: 200 MG (1 IN 1 D)
  2. ZOLOFT [Suspect]
     Indication: DEPRESSION
     Dosage: 200 MG (1 IN 1 D)
  3. POTASSIUM (POTASSIUM) [Concomitant]
  4. LASIX [Concomitant]
  5. WARFARIN SODIUM [Concomitant]
  6. TRAZODONE HCL [Concomitant]

REACTIONS (2)
  - CHRONIC OBSTRUCTIVE PULMONARY DISEASE [None]
  - EMPHYSEMA [None]
